FAERS Safety Report 7202022-4 (Version None)
Quarter: 2010Q4

REPORT INFORMATION
  Report Type: 
  Country: None (occurrence: None)
  Receive Date: 20101229
  Receipt Date: 20101221
  Transmission Date: 20110411
  Serious: Yes (Death)
  Sender: FDA-Public Use
  Company Number: JP-GENZYME-THYM-1001895

PATIENT
  Sex: Male
  Weight: 68 kg

DRUGS (28)
  1. THYMOGLOBULIN [Suspect]
     Indication: BONE MARROW CONDITIONING REGIMEN
     Dosage: 150 MG, QD
     Route: 042
     Dates: start: 20100325, end: 20100327
  2. FLUDARABINE PHOSPHATE [Concomitant]
     Indication: BONE MARROW CONDITIONING REGIMEN
     Dosage: UNK
     Dates: start: 20100325, end: 20100328
  3. BUSULFAN [Concomitant]
     Indication: BONE MARROW CONDITIONING REGIMEN
     Dosage: UNK
     Dates: start: 20100325, end: 20100328
  4. METHYLPREDNISOLONE SODIUM SUCCINATE [Concomitant]
     Indication: BONE MARROW CONDITIONING REGIMEN
     Dosage: UNK
     Dates: start: 20100325, end: 20100328
  5. METHYLPREDNISOLONE SODIUM SUCCINATE [Concomitant]
     Dosage: UNK
     Dates: start: 20100426, end: 20100430
  6. METHYLPREDNISOLONE SODIUM SUCCINATE [Concomitant]
     Dosage: UNK
     Dates: start: 20100503, end: 20100510
  7. METHYLPREDNISOLONE SODIUM SUCCINATE [Concomitant]
     Dosage: UNK
     Dates: start: 20100426, end: 20100510
  8. GRANISETRON HYDROCHLORIDE [Concomitant]
     Indication: PROPHYLAXIS
     Dosage: UNK
     Dates: start: 20100325, end: 20100328
  9. ITRACONAZOLE [Concomitant]
     Indication: INFECTION PROPHYLAXIS
     Dosage: UNK
     Dates: start: 20100325, end: 20100328
  10. LEVOFLOXACIN [Concomitant]
     Indication: INFECTION PROPHYLAXIS
     Dosage: UNK
     Dates: start: 20100325, end: 20100402
  11. ACYCLOVIR [Concomitant]
     Indication: INFECTION PROPHYLAXIS
     Dosage: UNK
     Dates: start: 20100325, end: 20100402
  12. URSODEOXYCHOLIC ACID [Concomitant]
     Indication: PROPHYLAXIS
     Dosage: UNK
     Dates: start: 20100325, end: 20100402
  13. VALPROATE SODIUM [Concomitant]
     Indication: PROPHYLAXIS
     Dosage: UNK
     Dates: start: 20100325, end: 20100329
  14. HYDROCORTISONE SODIUM SUCCINATE [Concomitant]
     Indication: PRODUCT USED FOR UNKNOWN INDICATION
     Dosage: UNK
     Dates: start: 20100330, end: 20100330
  15. HYDROCORTISONE SODIUM SUCCINATE [Concomitant]
     Dosage: UNK
     Dates: start: 20100409, end: 20100516
  16. GLYCYRRHIZIN GLYCINE CYSTEINE COMBINED DRUG [Concomitant]
     Indication: PRODUCT USED FOR UNKNOWN INDICATION
     Dosage: UNK
     Dates: start: 20100330, end: 20100330
  17. CYCLOSPORINE [Concomitant]
     Indication: PROPHYLAXIS AGAINST GRAFT VERSUS HOST DISEASE
     Dosage: UNK
     Dates: start: 20100329, end: 20100426
  18. FILGRASTIM [Concomitant]
     Indication: PROPHYLAXIS
     Dosage: UNK
     Dates: start: 20100331, end: 20100428
  19. FILGRASTIM [Concomitant]
     Dosage: UNK
     Dates: start: 20100503, end: 20100516
  20. NORMAL HUMAN IMMUNOGLOBULIN [Concomitant]
     Indication: INFECTION PROPHYLAXIS
     Dosage: UNK
     Dates: start: 20100331, end: 20100421
  21. MORPHINE HYDROCHLORIDE [Concomitant]
     Indication: PRODUCT USED FOR UNKNOWN INDICATION
     Dosage: UNK
     Dates: start: 20100422, end: 20100506
  22. FUROSEMIDE [Concomitant]
     Indication: MYELOFIBROSIS
     Dosage: UNK
     Dates: start: 20100410, end: 20100514
  23. VANCOMYCIN HYDROCHLORIDE [Concomitant]
     Indication: PRODUCT USED FOR UNKNOWN INDICATION
     Dosage: UNK
     Dates: start: 20100414, end: 20100514
  24. NOREPINEPHRINE BITARTRATE [Concomitant]
     Indication: MYELOFIBROSIS
     Dosage: UNK
     Dates: start: 20100515, end: 20100516
  25. BETAMETHASONE [Concomitant]
     Indication: CHRONIC GRAFT VERSUS HOST DISEASE
     Dosage: UNK
     Dates: end: 20100516
  26. INSULIN [Concomitant]
     Indication: DIABETES MELLITUS
     Dosage: UNK
     Dates: end: 20100516
  27. RED BLOOD CELLS, CONCENTRATED [Concomitant]
     Indication: MYELOFIBROSIS
     Dosage: UNK
     Dates: start: 20100129, end: 20100514
  28. PLATELETS, CONCENTRATED [Concomitant]
     Indication: MYELOFIBROSIS
     Dosage: UNK
     Dates: start: 20100129, end: 20100514

REACTIONS (2)
  - CONDITION AGGRAVATED [None]
  - PYREXIA [None]
